FAERS Safety Report 5248783-5 (Version None)
Quarter: 2007Q1

REPORT INFORMATION
  Report Type: 
  Country: None (occurrence: None)
  Receive Date: 20070228
  Receipt Date: 20060130
  Transmission Date: 20070707
  Serious: No
  Sender: FDA-Public Use
  Company Number: US-GLAXOSMITHKLINE-A0591486A

PATIENT
  Age: 63 Year
  Sex: Female

DRUGS (7)
  1. VALTREX [Suspect]
     Dosage: 1000MG PER DAY
     Route: 048
     Dates: start: 20051223, end: 20051228
  2. LEVOTHYROXINE SODIUM [Concomitant]
  3. ATENOLOL [Concomitant]
  4. NABUMETONE [Concomitant]
  5. DILTIAZEM [Concomitant]
  6. CYCLOBENZAPRINE HCL [Concomitant]
  7. NORTRIPTYLINE HCL [Concomitant]

REACTIONS (1)
  - HYPOAESTHESIA [None]
